FAERS Safety Report 10065476 (Version 1)
Quarter: 2014Q2

REPORT INFORMATION
  Report Type: Report from Study
  Country: US (occurrence: US)
  Receive Date: 20140408
  Receipt Date: 20140408
  Transmission Date: 20141212
  Serious: Yes (Death)
  Sender: FDA-Public Use
  Company Number: PHHO2014US004914

PATIENT
  Age: 56 Year
  Sex: Female
  Weight: 109.1 kg

DRUGS (10)
  1. SORAFENIB [Suspect]
     Indication: GLIOBLASTOMA
     Dosage: 400 MG, BID (7 ON 7OFF)
     Route: 048
     Dates: start: 20140131, end: 20140227
  2. AFINITOR [Suspect]
     Indication: GLIOBLASTOMA
     Dosage: 5 MG, UNK (DAILY)
     Route: 048
     Dates: start: 20140131, end: 20140227
  3. CLONAZEPAM [Concomitant]
     Indication: CONVULSION
     Dosage: 1 DF, Q8H (0.5 MG)
     Route: 048
  4. DEXAMETHASONE [Concomitant]
     Dosage: 4 MG, BID
     Route: 048
     Dates: end: 20140325
  5. KEPPRA [Concomitant]
     Dosage: 2 DF, BID (1000 MG)
     Route: 048
     Dates: end: 20140325
  6. LISINOPRIL [Concomitant]
     Dosage: 20 MG, BID
     Route: 048
     Dates: end: 20140325
  7. METOPROLOL SUCCINATE [Concomitant]
     Dosage: 25 MG, QD
     Route: 048
     Dates: end: 20140325
  8. ONDANSETRON//ONDANSETRON HYDROCHLORIDE [Concomitant]
     Dosage: 1 DF, Q8H (8MG)
     Route: 048
  9. VIMPAT [Concomitant]
     Indication: CONVULSION
     Dosage: 1 DF, BID (200 MG)
     Route: 048
     Dates: end: 20140325
  10. SENOKOT                                 /UNK/ [Concomitant]
     Dosage: 1 DF, PRN
     Route: 048

REACTIONS (1)
  - Embolism [Fatal]
